FAERS Safety Report 8625067-6 (Version None)
Quarter: 2012Q3

REPORT INFORMATION
  Report Type: 
  Country: None (occurrence: None)
  Receive Date: 20120827
  Receipt Date: 20120817
  Transmission Date: 20120928
  Serious: No
  Sender: FDA-Public Use
  Company Number: US-009507513-1208USA007977

PATIENT

DRUGS (1)
  1. NEXPLANON [Suspect]
     Indication: CONTRACEPTION
     Dosage: 68 MG, UNK
     Route: 059
     Dates: start: 20120223

REACTIONS (5)
  - ANXIETY [None]
  - DEVICE BREAKAGE [None]
  - WEIGHT LOSS POOR [None]
  - ABDOMINAL DISTENSION [None]
  - WEIGHT INCREASED [None]
